FAERS Safety Report 21094202 (Version 1)
Quarter: 2022Q3

REPORT INFORMATION
  Report Type: Spontaneous
  Country: US (occurrence: None)
  Receive Date: 20220716
  Receipt Date: 20220716
  Transmission Date: 20221027
  Serious: Yes (Hospitalization)
  Sender: FDA-Public Use
  Company Number: None

PATIENT
  Sex: Male
  Weight: 95.25 kg

DRUGS (14)
  1. WELIREG [Suspect]
     Active Substance: BELZUTIFAN
     Indication: Renal cancer
     Dosage: 120 MG DAILY ORAL??START THERAP: 25-JUL-2022?
     Route: 048
     Dates: start: 2022
  2. BASAGLAR KWIKPEN [Concomitant]
     Active Substance: INSULIN GLARGINE
  3. SYNTHROID [Concomitant]
     Active Substance: LEVOTHYROXINE SODIUM
  4. TAMSULOSIN [Concomitant]
     Active Substance: TAMSULOSIN
  5. ATORVASTATIN [Concomitant]
     Active Substance: ATORVASTATIN
  6. CARVEDILOL [Concomitant]
     Active Substance: CARVEDILOL
  7. LISINOPRIL [Concomitant]
     Active Substance: LISINOPRIL
  8. HYDROCHLOROTHIAZIDE [Concomitant]
     Active Substance: HYDROCHLOROTHIAZIDE
  9. NORCO [Concomitant]
     Active Substance: ACETAMINOPHEN\HYDROCODONE BITARTRATE
  10. METFORMIN [Concomitant]
     Active Substance: METFORMIN HYDROCHLORIDE
  11. POTASSIUM CHLORIDE [Concomitant]
     Active Substance: POTASSIUM CHLORIDE
  12. PREGABALIN [Concomitant]
     Active Substance: PREGABALIN
  13. MORPHINE [Concomitant]
     Active Substance: MORPHINE
  14. VITAMINS [Concomitant]
     Active Substance: VITAMINS

REACTIONS (1)
  - Pneumonia [None]
